FAERS Safety Report 12942584 (Version 1)
Quarter: 2016Q4

REPORT INFORMATION
  Report Type: Spontaneous
  Country: US (occurrence: US)
  Receive Date: 20161114
  Receipt Date: 20161114
  Transmission Date: 20170207
  Serious: No
  Sender: FDA-Public Use
  Company Number: US-ASTRAZENECA-2016SF12649

PATIENT
  Age: 16610 Day
  Sex: Male
  Weight: 122.5 kg

DRUGS (2)
  1. CRESTOR [Suspect]
     Active Substance: ROSUVASTATIN CALCIUM
     Indication: BLOOD TRIGLYCERIDES DECREASED
     Dosage: MG, DAILY- GENERIC
     Route: 048
     Dates: start: 20161019
  2. CRESTOR [Suspect]
     Active Substance: ROSUVASTATIN CALCIUM
     Indication: BLOOD TRIGLYCERIDES DECREASED
     Route: 048
     Dates: start: 200807

REACTIONS (7)
  - Dysphonia [Unknown]
  - Vascular stent restenosis [Unknown]
  - Feeling abnormal [Unknown]
  - Throat irritation [Unknown]
  - Head discomfort [Unknown]
  - Headache [Unknown]
  - Dizziness [Unknown]

NARRATIVE: CASE EVENT DATE: 20161020
